FAERS Safety Report 8346183-2 (Version None)
Quarter: 2012Q2

REPORT INFORMATION
  Report Type: 
  Country: None (occurrence: None)
  Receive Date: 20120507
  Receipt Date: 20120423
  Transmission Date: 20120825
  Serious: Yes (Death)
  Sender: FDA-Public Use
  Company Number: UTC-017034

PATIENT
  Age: 64 Year
  Sex: Female
  Weight: 58 kg

DRUGS (7)
  1. DIURETICS (DIURETICS) [Concomitant]
  2. COZAAR [Concomitant]
  3. ADCIRCA [Concomitant]
  4. LETAIRIS [Concomitant]
  5. TYVASO [Suspect]
     Indication: PULMONARY ARTERIAL HYPERTENSION
     Dosage: 216 MCG (54 MCG, 4 IN 1 D), INHALATION
     Route: 055
     Dates: start: 20100301, end: 20111201
  6. OXYGEN (OXYGEN) [Concomitant]
  7. METOPROLOL TARTRATE [Concomitant]

REACTIONS (4)
  - DISEASE PROGRESSION [None]
  - SCLERODERMA [None]
  - LUNG DISORDER [None]
  - PULMONARY ARTERIAL HYPERTENSION [None]
